FAERS Safety Report 7465141-3 (Version None)
Quarter: 2011Q2

REPORT INFORMATION
  Report Type: 
  Country: None (occurrence: None)
  Receive Date: 20110509
  Receipt Date: 20110425
  Transmission Date: 20111010
  Serious: Yes (Life-Threatening)
  Sender: FDA-Public Use
  Company Number: US-SHIONOGI, INC-2011000057

PATIENT
  Sex: Female

DRUGS (2)
  1. EPINEPHRINE [Suspect]
     Indication: HYPERSENSITIVITY
     Dosage: 0.15 MG, PRN
     Route: 030
  2. AVIANE-28 [Concomitant]

REACTIONS (2)
  - DEVICE FAILURE [None]
  - PRODUCT QUALITY ISSUE [None]
